FAERS Safety Report 9340307 (Version 1)
Quarter: 2013Q2

REPORT INFORMATION
  Report Type: Spontaneous
  Country: TW (occurrence: None)
  Receive Date: 20130605
  Receipt Date: 20130605
  Transmission Date: 20140414
  Serious: Yes (Other)
  Sender: FDA-Public Use
  Company Number: NSR_01152_2013

PATIENT
  Age: 79 Year
  Sex: Male
  Weight: 75 kg

DRUGS (1)
  1. METOCLOPRAMIDE (METOCLOPRAMIDE) [Suspect]
     Route: 040

REACTIONS (2)
  - Dyskinesia [None]
  - Restlessness [None]
